FAERS Safety Report 8968700 (Version 2)
Quarter: 2013Q1

REPORT INFORMATION
  Report Type: Spontaneous
  Country: JP (occurrence: JP)
  Receive Date: 20121217
  Receipt Date: 20130201
  Transmission Date: 20140127
  Serious: Yes (Death)
  Sender: FDA-Public Use
  Company Number: JP-009507513-1003USA01690

PATIENT
  Age: 61 Year
  Sex: Female
  Weight: 67 kg

DRUGS (9)
  1. TIMOPTOL [Suspect]
     Dosage: ONE DROP IN EACH EYE EACH TIME
     Route: 047
     Dates: start: 20100305, end: 20100305
  2. MYDRIN [Concomitant]
     Dosage: DAILY DOSAGE UNKNOWN
     Route: 047
     Dates: start: 20100305, end: 20100305
  3. SANPILO [Concomitant]
     Dosage: DAILY DOSAGE UNKNOWN
     Route: 047
     Dates: start: 20100305, end: 20100305
  4. MERCAZOLE [Concomitant]
     Indication: HYPERTHYROIDISM
     Dosage: DAILY DOSAGE UNKNOWN
  5. MEPTIN [Concomitant]
     Indication: ASTHMA
     Dosage: DAILY DOSAGE UNKNOWN
     Route: 055
  6. THEO-DUR [Concomitant]
     Indication: ASTHMA
     Dosage: DAILY DOSAGE UNKNOWN
     Route: 048
  7. HOKUNALIN [Concomitant]
     Indication: ASTHMA
     Dosage: DAILY DOSAGE UNKNOWN
     Route: 062
  8. MUCOSOLVAN [Concomitant]
     Indication: ASTHMA
     Dosage: DAILY DOSAGE UNKNOWN
     Route: 048
  9. VOLTAREN [Concomitant]
     Indication: HEADACHE
     Dosage: DAILY DOSAGE UNKNOWN
     Route: 048

REACTIONS (10)
  - Asthma [Fatal]
  - Cardio-respiratory arrest [None]
  - Loss of consciousness [None]
  - Petechiae [None]
  - Rib fracture [None]
  - Sternal fracture [None]
  - Respiratory failure [None]
  - Status asthmaticus [None]
  - Contraindication to medical treatment [None]
  - Emphysema [None]
